FAERS Safety Report 18221505 (Version 3)
Quarter: 2021Q3

REPORT INFORMATION
  Report Type: Spontaneous
  Country: US (occurrence: US)
  Receive Date: 20200902
  Receipt Date: 20210907
  Transmission Date: 20211014
  Serious: No
  Sender: FDA-Public Use
  Company Number: US-PFIZER INC-2020339157

PATIENT
  Age: 76 Year
  Sex: Female

DRUGS (4)
  1. NARDIL [Suspect]
     Active Substance: PHENELZINE SULFATE
     Dosage: UNK, 1X/DAY
  2. NARDIL [Suspect]
     Active Substance: PHENELZINE SULFATE
     Dosage: 1 DF, 4X/DAY
  3. NARDIL [Suspect]
     Active Substance: PHENELZINE SULFATE
     Dosage: UNK
  4. NARDIL [Suspect]
     Active Substance: PHENELZINE SULFATE
     Dosage: UNK, 3X/DAY

REACTIONS (6)
  - Peripheral swelling [Unknown]
  - Intentional product misuse [Unknown]
  - Dizziness [Unknown]
  - Emotional disorder [Unknown]
  - Mental disorder [Unknown]
  - Depressed mood [Unknown]
